FAERS Safety Report 9790418 (Version 1)
Quarter: 2013Q4

REPORT INFORMATION
  Report Type: Spontaneous
  Country: JP (occurrence: JP)
  Receive Date: 20131231
  Receipt Date: 20131231
  Transmission Date: 20140711
  Serious: Yes (Death)
  Sender: FDA-Public Use
  Company Number: JP-MALLINCKRODT-T201305190

PATIENT
  Age: 50 Year
  Sex: Female
  Weight: 37 kg

DRUGS (8)
  1. METHADONE [Suspect]
     Indication: CANCER PAIN
     Dosage: 5 MG, (15 MG DAILY DOSE)
     Route: 048
     Dates: start: 20131119, end: 20131125
  2. METHADONE [Suspect]
     Dosage: 20 MG DAILY DOSE
     Route: 048
     Dates: start: 20131126, end: 20131202
  3. METHADONE [Suspect]
     Dosage: 10 MG, (30 MG DAILY DOSE)
     Route: 048
     Dates: start: 20131203, end: 20131214
  4. OXINORM [Concomitant]
     Dosage: 5 MG, PRN
     Route: 048
     Dates: start: 20131118
  5. MAINTATE [Concomitant]
     Dosage: 1.25 MCG
     Route: 048
     Dates: start: 20130701
  6. LYRICA [Concomitant]
     Dosage: 100 MG, UNK
     Route: 048
     Dates: start: 20131113
  7. DAIKENTYUTO [Concomitant]
     Dosage: 7.5 G, UNK
     Route: 048
     Dates: start: 20130718
  8. MEXITIL [Concomitant]
     Dosage: 200 MG, UNK
     Route: 048
     Dates: start: 20131107

REACTIONS (1)
  - Sarcoma uterus [Fatal]
